FAERS Safety Report 24624716 (Version 1)
Quarter: 2024Q4

REPORT INFORMATION
  Report Type: Spontaneous
  Country: FR (occurrence: FR)
  Receive Date: 20241115
  Receipt Date: 20241115
  Transmission Date: 20250114
  Serious: Yes (Hospitalization, Other)
  Sender: AUROBINDO
  Company Number: FR-AFSSAPS-PV2024001013

PATIENT
  Age: 64 Year
  Sex: Male
  Weight: 85.4 kg

DRUGS (3)
  1. AMOXICILLIN [Suspect]
     Active Substance: AMOXICILLIN
     Indication: Bronchitis
     Dosage: UNK
     Route: 048
     Dates: start: 20241007, end: 20241013
  2. METRONIDAZOLE [Suspect]
     Active Substance: METRONIDAZOLE
     Indication: Antibiotic prophylaxis
     Dosage: UNK
     Route: 048
     Dates: start: 20241011, end: 20241013
  3. SPIRAMYCIN [Suspect]
     Active Substance: SPIRAMYCIN
     Indication: Antibiotic prophylaxis
     Dosage: UNK
     Route: 048
     Dates: start: 20241011, end: 20241013

REACTIONS (1)
  - AGEP-DRESS overlap [Recovered/Resolved]

NARRATIVE: CASE EVENT DATE: 20241012
